FAERS Safety Report 16688091 (Version 2)
Quarter: 2019Q3

REPORT INFORMATION
  Report Type: Report from Study
  Country: US (occurrence: US)
  Receive Date: 20190809
  Receipt Date: 20190822
  Transmission Date: 20191004
  Serious: Yes (Hospitalization)
  Sender: FDA-Public Use
  Company Number: US-PFIZER INC-2019329395

PATIENT
  Age: 66 Year
  Sex: Male
  Weight: 93.92 kg

DRUGS (6)
  1. TREMELIMUMAB PFIZER [Suspect]
     Active Substance: TREMELIMUMAB
     Indication: PROSTATE CANCER
     Dosage: 80 MG, CYCLIC(EVERY 4 WEEKS (CYCLE 1 AND 2))
     Route: 058
     Dates: start: 20190507, end: 20190702
  2. PF-06801591 [Suspect]
     Active Substance: SASANLIMAB
     Indication: PROSTATE CANCER
     Dosage: 130 MG, EVERY 4 WEEKS
     Route: 058
     Dates: start: 20190507, end: 20190702
  3. NORVASC [Suspect]
     Active Substance: AMLODIPINE BESYLATE
     Indication: ESSENTIAL HYPERTENSION
     Dosage: 5 MG, 1X/DAY
     Route: 048
     Dates: start: 20190717, end: 20190722
  4. TRIGRID DELIVERY SYSTEM [Suspect]
     Active Substance: DEVICE
     Indication: ELECTROPORATION THERAPY
     Dosage: EVERY 4 WEEKS
     Route: 030
     Dates: start: 20190604, end: 20190702
  5. PF-06755990 DNA PLASMID [Suspect]
     Active Substance: INVESTIGATIONAL PRODUCT
     Indication: PROSTATE CANCER
     Dosage: 5 MG, DAY 29 OF CYCLE 1 AND 2 THEN EVERY 4 WEEKS
     Route: 030
     Dates: start: 20190604, end: 20190702
  6. PF-06755992 ADENOVIRUS [Suspect]
     Active Substance: INVESTIGATIONAL PRODUCT
     Indication: PROSTATE CANCER
     Dosage: 6 X10 VP (VIRAL PARTICLE) DAY1 EVERY 16 WEEKS (CYCLE 1 AND 2)
     Route: 030
     Dates: start: 20190507, end: 20190507

REACTIONS (1)
  - Hyponatraemia [Recovered/Resolved]

NARRATIVE: CASE EVENT DATE: 20190722
